FAERS Safety Report 18452960 (Version 5)
Quarter: 2023Q2

REPORT INFORMATION
  Report Type: Spontaneous
  Country: CA (occurrence: CA)
  Receive Date: 20201102
  Receipt Date: 20230407
  Transmission Date: 20230722
  Serious: Yes (Hospitalization, Other)
  Sender: FDA-Public Use
  Company Number: CA-SAMSUNG BIOEPIS-SB-2020-33117

PATIENT
  Age: 56 Year
  Sex: Male
  Weight: 85 kg

DRUGS (12)
  1. INFLIXIMAB [Suspect]
     Active Substance: INFLIXIMAB
     Indication: Crohn^s disease
     Route: 042
  2. INFLIXIMAB [Suspect]
     Active Substance: INFLIXIMAB
     Route: 042
  3. ACETAMINOPHEN [Concomitant]
     Active Substance: ACETAMINOPHEN
     Indication: Product used for unknown indication
     Dosage: UNKNOWN, AS REQUIRED
     Route: 065
  4. DALTEPARIN SODIUM [Concomitant]
     Active Substance: DALTEPARIN SODIUM
     Indication: Product used for unknown indication
     Dosage: UNKNOWN
     Route: 065
  5. ERGOCALCIFEROL [Concomitant]
     Active Substance: ERGOCALCIFEROL
     Indication: Product used for unknown indication
     Dosage: UNKNOWN
     Route: 065
  6. GRAVOL [Concomitant]
     Active Substance: DIMENHYDRINATE
     Indication: Product used for unknown indication
     Dosage: UNKNOWN, AS REQUIRED
     Route: 065
  7. FERROUS SULFATE ANHYDROUS [Concomitant]
     Active Substance: FERROUS SULFATE ANHYDROUS
     Indication: Product used for unknown indication
     Dosage: UNKNOWN
     Route: 065
  8. MELATONIN [Concomitant]
     Active Substance: MELATONIN
     Indication: Product used for unknown indication
     Dosage: UNKNOWN
     Route: 065
  9. ONDANSETRON [Concomitant]
     Active Substance: ONDANSETRON
     Indication: Product used for unknown indication
     Dosage: UNKNOWN, AS REQUIRED,?INTRAVESICAL SOLUTION
     Route: 065
  10. PREDNISONE [Concomitant]
     Active Substance: PREDNISONE
     Indication: Product used for unknown indication
     Route: 065
  11. AMOXICILLIN\CLAVULANATE POTASSIUM [Concomitant]
     Active Substance: AMOXICILLIN\CLAVULANATE POTASSIUM
     Indication: Product used for unknown indication
     Dosage: UNKNOWN
     Route: 065
  12. HYDROCORTISONE [Concomitant]
     Active Substance: HYDROCORTISONE
     Indication: Premedication
     Route: 065

REACTIONS (26)
  - Abdominal mass [Unknown]
  - Abdominal pain lower [Unknown]
  - Abdominal tenderness [Unknown]
  - Abnormal behaviour [Unknown]
  - Bowel movement irregularity [Unknown]
  - Condition aggravated [Unknown]
  - Cough [Unknown]
  - Dyspnoea [Unknown]
  - Enterocolonic fistula [Unknown]
  - Increased appetite [Unknown]
  - Inflammatory marker increased [Unknown]
  - Influenza [Unknown]
  - Intestinal obstruction [Unknown]
  - Musculoskeletal injury [Unknown]
  - Night sweats [Unknown]
  - Pneumonia [Unknown]
  - Psychomotor hyperactivity [Unknown]
  - Pyrexia [Unknown]
  - Vomiting [Unknown]
  - Weight decreased [Unknown]
  - Coronavirus test positive [Unknown]
  - Heart rate decreased [Unknown]
  - Lymphadenopathy [Unknown]
  - Malaise [Unknown]
  - Rash [Unknown]
  - Off label use [Unknown]
